FAERS Safety Report 8407812-8 (Version None)
Quarter: 2012Q2

REPORT INFORMATION
  Report Type: 
  Country: None (occurrence: None)
  Receive Date: 20120604
  Receipt Date: 20120523
  Transmission Date: 20120825
  Serious: Yes (Other)
  Sender: FDA-Public Use
  Company Number: US-BRISTOL-MYERS SQUIBB COMPANY-15918444

PATIENT
  Age: 56 Year
  Sex: Male

DRUGS (7)
  1. HYDROCODONE BITARTRATE + ACETAMINOPHEN [Concomitant]
     Indication: PAIN
     Dosage: 1DF=7.5-325MG
     Route: 048
  2. PREDNISONE [Concomitant]
     Dosage: TABS
  3. LEXAPRO [Concomitant]
     Dosage: TABS AT BEDTIME
     Route: 048
  4. MIRALAX [Concomitant]
     Dosage: POWDER
  5. PRILOSEC [Concomitant]
     Route: 048
  6. IPILIMUMAB [Suspect]
     Indication: MALIGNANT MELANOMA
     Dosage: NO OF COURSES: 04
     Route: 042
     Dates: start: 20110304, end: 20110509
  7. STEROIDS [Concomitant]
     Dates: start: 20110721

REACTIONS (1)
  - RETINAL PIGMENTATION [None]
